FAERS Safety Report 11790718 (Version 10)
Quarter: 2017Q1

REPORT INFORMATION
  Report Type: Spontaneous
  Country: PR (occurrence: PR)
  Receive Date: 20151201
  Receipt Date: 20170223
  Transmission Date: 20170428
  Serious: Yes (Other)
  Sender: FDA-Public Use
  Company Number: PR-PFIZER INC-2015414249

PATIENT
  Age: 75 Year
  Sex: Female
  Weight: 78 kg

DRUGS (10)
  1. IBRANCE [Suspect]
     Active Substance: PALBOCICLIB
     Dosage: UNK
  2. IBRANCE [Suspect]
     Active Substance: PALBOCICLIB
     Dosage: 75 MG, DAILY
     Route: 048
     Dates: start: 20150514
  3. DIPHENHYDRAMINE. [Concomitant]
     Active Substance: DIPHENHYDRAMINE
     Dosage: 50 MG, UNK
     Route: 048
  4. LETROZOLE. [Concomitant]
     Active Substance: LETROZOLE
     Dosage: UNK
  5. IBRANCE [Suspect]
     Active Substance: PALBOCICLIB
     Dosage: 75 MG, DAILY
     Route: 048
     Dates: start: 20150514
  6. IBRANCE [Suspect]
     Active Substance: PALBOCICLIB
     Dosage: 75 MG, DAILY
     Route: 048
     Dates: start: 20150514
  7. LOSARTAN. [Concomitant]
     Active Substance: LOSARTAN
     Dosage: 25 MG, UNK
     Route: 048
  8. AVATOR [Concomitant]
     Dosage: 40 MG, UNK
     Route: 048
  9. IBRANCE [Suspect]
     Active Substance: PALBOCICLIB
     Indication: BREAST CANCER FEMALE
     Dosage: 75 MG, DAILY (FOR 21 DAYS) CYCLIC
     Route: 048
     Dates: start: 20150514
  10. IBRANCE [Suspect]
     Active Substance: PALBOCICLIB
     Dosage: 75 MG, DAILY
     Route: 048
     Dates: start: 20150514

REACTIONS (18)
  - Fatigue [Unknown]
  - White blood cell count decreased [Unknown]
  - Hot flush [Unknown]
  - Cough [Not Recovered/Not Resolved]
  - Chills [Not Recovered/Not Resolved]
  - Decreased appetite [Unknown]
  - Drug dose omission [Unknown]
  - Schizophrenia [Unknown]
  - Flushing [Not Recovered/Not Resolved]
  - Insomnia [Unknown]
  - Condition aggravated [Unknown]
  - Toothache [Unknown]
  - Oedema [Unknown]
  - Arthralgia [Unknown]
  - Palpitations [Not Recovered/Not Resolved]
  - Bone pain [Not Recovered/Not Resolved]
  - Balance disorder [Unknown]
  - Dizziness [Unknown]

NARRATIVE: CASE EVENT DATE: 2015
